FAERS Safety Report 22238238 (Version 1)
Quarter: 2023Q2

REPORT INFORMATION
  Report Type: Spontaneous
  Country: FR (occurrence: FR)
  Receive Date: 20230421
  Receipt Date: 20230421
  Transmission Date: 20230722
  Serious: No
  Sender: FDA-Public Use
  Company Number: FR-ALKEM LABORATORIES LIMITED-FR-ALKEM-2023-02328

PATIENT
  Age: 20 Year
  Sex: Female

DRUGS (11)
  1. AZATHIOPRINE [Suspect]
     Active Substance: AZATHIOPRINE
     Indication: Systemic lupus erythematosus
     Dosage: 100 MILLIGRAM, OD
     Route: 065
     Dates: start: 200612
  2. AZATHIOPRINE [Suspect]
     Active Substance: AZATHIOPRINE
     Dosage: 150 MILLIGRAM, OD
     Route: 065
     Dates: start: 200803
  3. MYCOPHENOLATE MOFETIL [Suspect]
     Active Substance: MYCOPHENOLATE MOFETIL
     Indication: Systemic lupus erythematosus
     Dosage: 2 GRAM, OD
     Route: 065
     Dates: start: 200711
  4. CYCLOPHOSPHAMIDE [Suspect]
     Active Substance: CYCLOPHOSPHAMIDE
     Indication: Myopericarditis
     Dosage: 500 MILLIGRAM, 5 TIMES
     Route: 040
     Dates: start: 200706
  5. CYCLOPHOSPHAMIDE [Suspect]
     Active Substance: CYCLOPHOSPHAMIDE
     Indication: Acute kidney injury
     Dosage: 500 MILLIGRAM, TWICE
     Route: 065
     Dates: start: 200803
  6. RITUXIMAB [Suspect]
     Active Substance: RITUXIMAB
     Indication: Systemic lupus erythematosus
     Dosage: 1 GRAM, BID
     Route: 065
     Dates: start: 200803
  7. RITUXIMAB [Suspect]
     Active Substance: RITUXIMAB
     Indication: Acute kidney injury
  8. RITUXIMAB [Suspect]
     Active Substance: RITUXIMAB
     Indication: Myopericarditis
  9. SOLU-MEDROL [Suspect]
     Active Substance: METHYLPREDNISOLONE SODIUM SUCCINATE
     Indication: Glomerulonephritis
     Dosage: 500 MILLIGRAM, OD
     Route: 040
     Dates: start: 200612
  10. SOLU-MEDROL [Suspect]
     Active Substance: METHYLPREDNISOLONE SODIUM SUCCINATE
     Dosage: 500 MILLIGRAM, OD
     Route: 040
     Dates: start: 200706
  11. SOLU-MEDROL [Suspect]
     Active Substance: METHYLPREDNISOLONE SODIUM SUCCINATE
     Dosage: 750 MILLIGRAM, OD
     Route: 040
     Dates: start: 200803

REACTIONS (2)
  - Trichodysplasia spinulosa [Unknown]
  - Polyomavirus test positive [Unknown]
